FAERS Safety Report 18126828 (Version 3)
Quarter: 2020Q4

REPORT INFORMATION
  Report Type: Report from Study
  Country: None (occurrence: US)
  Receive Date: 20200809
  Receipt Date: 20201102
  Transmission Date: 20210113
  Serious: Yes (Hospitalization, Other)
  Sender: FDA-Public Use
  Company Number: US-ABBVIE-20K-163-3511567-00

PATIENT
  Age: 45 Year
  Sex: Female

DRUGS (1)
  1. HUMIRA [Suspect]
     Active Substance: ADALIMUMAB
     Indication: RHEUMATOID ARTHRITIS
     Route: 058

REACTIONS (18)
  - Nerve injury [Not Recovered/Not Resolved]
  - Gait inability [Unknown]
  - Dysstasia [Unknown]
  - Epistaxis [Recovered/Resolved]
  - Anxiety [Not Recovered/Not Resolved]
  - Injection site haemorrhage [Recovered/Resolved]
  - Rheumatoid arthritis [Recovered/Resolved]
  - Seizure [Not Recovered/Not Resolved]
  - Nerve compression [Recovering/Resolving]
  - Neuralgia [Recovering/Resolving]
  - Road traffic accident [Not Recovered/Not Resolved]
  - Procedural pain [Unknown]
  - Poor quality sleep [Not Recovered/Not Resolved]
  - Complex regional pain syndrome [Not Recovered/Not Resolved]
  - Cerebrovascular accident [Not Recovered/Not Resolved]
  - Neck surgery [Unknown]
  - Depression [Not Recovered/Not Resolved]
  - Complex regional pain syndrome [Not Recovered/Not Resolved]

NARRATIVE: CASE EVENT DATE: 2008
